FAERS Safety Report 9502101 (Version 2)
Quarter: 2013Q3

REPORT INFORMATION
  Report Type: Report from Study
  Country: CN (occurrence: CN)
  Receive Date: 20130905
  Receipt Date: 20130905
  Transmission Date: 20140515
  Serious: Yes (Other)
  Sender: FDA-Public Use
  Company Number: CN-US-EMD SERONO, INC.-7229030

PATIENT
  Sex: Female
  Weight: 26 kg

DRUGS (1)
  1. SAIZEN [Suspect]
     Indication: PRECOCIOUS PUBERTY
     Dosage: SAIZEN DAILY INJECTION VOLUME 4

REACTIONS (4)
  - Intracranial pressure increased [Recovered/Resolved]
  - Pallor [Recovered/Resolved]
  - Arthralgia [Recovered/Resolved]
  - Headache [Recovered/Resolved]
